FAERS Safety Report 9506912 (Version 1)
Quarter: 2013Q3

REPORT INFORMATION
  Report Type: Spontaneous
  Country: IR (occurrence: None)
  Receive Date: 20130904
  Receipt Date: 20130904
  Transmission Date: 20140515
  Serious: Yes (Other)
  Sender: FDA-Public Use
  Company Number: 2013/165

PATIENT
  Age: 4 Year
  Sex: Male

DRUGS (1)
  1. MEMANTINE [Suspect]
     Indication: AUTISM

REACTIONS (2)
  - Speech disorder [None]
  - Condition aggravated [None]
